FAERS Safety Report 8163584-6 (Version None)
Quarter: 2012Q1

REPORT INFORMATION
  Report Type: 
  Country: None (occurrence: None)
  Receive Date: 20120224
  Receipt Date: 20120223
  Transmission Date: 20120608
  Serious: No
  Sender: FDA-Public Use
  Company Number: US-B.I. PHARMACEUTICALS,INC./RIDGEFIELD-2011-BP-23799BP

PATIENT
  Sex: Female
  Weight: 88.45 kg

DRUGS (4)
  1. ULORIC [Concomitant]
     Indication: GOUT
     Dosage: 40 MG
     Dates: start: 20110119
  2. AVAPRO [Concomitant]
     Indication: HYPERTENSION
     Dosage: 300 MG
     Dates: start: 20101129
  3. TRADJENTA [Suspect]
     Indication: DIABETES MELLITUS
     Dosage: 5 MG
     Dates: start: 20110830, end: 20110907
  4. NORVASC [Concomitant]
     Indication: HYPERTENSION
     Dosage: 5 MG
     Dates: start: 20101206

REACTIONS (2)
  - JOINT SWELLING [None]
  - NERVOUSNESS [None]
